FAERS Safety Report 9319768 (Version 1)
Quarter: 2013Q2

REPORT INFORMATION
  Report Type: Spontaneous
  Country: US (occurrence: None)
  Receive Date: 20130529
  Receipt Date: 20130529
  Transmission Date: 20140414
  Serious: Yes (Other)
  Sender: FDA-Public Use
  Company Number: None

PATIENT
  Age: 49 Year
  Sex: Female
  Weight: 81.65 kg

DRUGS (2)
  1. CYMBALTA [Suspect]
     Indication: POSTPARTUM DEPRESSION
     Route: 048
     Dates: start: 20031123, end: 20130501
  2. CYMBALTA [Suspect]
     Indication: ANXIETY
     Route: 048
     Dates: start: 20031123, end: 20130501

REACTIONS (12)
  - Nausea [None]
  - Abdominal pain upper [None]
  - Diarrhoea [None]
  - Dizziness [None]
  - Nightmare [None]
  - Agitation [None]
  - Tinnitus [None]
  - Feeling hot [None]
  - Night sweats [None]
  - Paraesthesia [None]
  - Presyncope [None]
  - Crying [None]
